FAERS Safety Report 6146949-3 (Version None)
Quarter: 2009Q2

REPORT INFORMATION
  Report Type: 
  Country: None (occurrence: None)
  Receive Date: 20090407
  Receipt Date: 20090326
  Transmission Date: 20091009
  Serious: Yes (Hospitalization, Other)
  Sender: FDA-Public Use
  Company Number: JP-ELI_LILLY_AND_COMPANY-JP200902004586

PATIENT
  Sex: Male
  Weight: 82 kg

DRUGS (7)
  1. ZYPREXA [Suspect]
     Indication: SCHIZOPHRENIA
     Dosage: 10-20 MG, DAILY (1/D)
     Route: 048
     Dates: start: 20080929, end: 20081116
  2. ZYPREXA [Suspect]
     Dosage: 20 MG, DAILY (1/D)
     Route: 048
     Dates: start: 20090205
  3. SEROQUEL [Concomitant]
     Indication: SCHIZOPHRENIA
     Dosage: 50 MG, DAILY (1/D)
     Route: 048
     Dates: start: 20081211, end: 20090222
  4. RISPERDAL [Concomitant]
     Indication: SCHIZOPHRENIA
     Dosage: 4MG, 2/D
     Route: 048
     Dates: start: 20081020, end: 20090101
  5. RISPERDAL [Concomitant]
     Dosage: 2 MG, 2/D
     Route: 048
     Dates: start: 20090101
  6. HIRNAMIN [Concomitant]
  7. SENNOSIDE [Concomitant]
     Indication: CONSTIPATION
     Dosage: 12 MG, DAILY (1/D)
     Route: 048
     Dates: start: 20090130

REACTIONS (4)
  - GRAND MAL CONVULSION [None]
  - INSOMNIA [None]
  - PARKINSONISM [None]
  - SUICIDE ATTEMPT [None]
